FAERS Safety Report 8802020 (Version 3)
Quarter: 2013Q1

REPORT INFORMATION
  Report Type: Spontaneous
  Country: US (occurrence: US)
  Receive Date: 20120921
  Receipt Date: 20130111
  Transmission Date: 20140127
  Serious: Yes (Hospitalization, Other)
  Sender: FDA-Public Use
  Company Number: US-BAYER-2012-096421

PATIENT
  Age: 32 Year
  Sex: Female
  Weight: 63.49 kg

DRUGS (20)
  1. YASMIN [Suspect]
     Indication: PREMENSTRUAL SYNDROME
     Dosage: UNK
     Dates: start: 200203, end: 20050608
  2. YASMIN [Suspect]
     Indication: CONTRACEPTION
  3. YASMIN [Suspect]
     Indication: ACNE
  4. SYNTHROID [Concomitant]
     Indication: HYPOTHYROIDISM
     Dosage: 0.088 MG, UNK
     Dates: start: 2001
  5. EFFEXOR [Concomitant]
     Indication: DEPRESSION
     Dosage: UNK
     Dates: start: 2001
  6. PRISTIQ [Concomitant]
     Dosage: UNK
     Dates: start: 2001
  7. SYMBICORT [Concomitant]
     Indication: ASTHMA
     Dosage: UNK UNK, PRN
     Dates: start: 2002
  8. XOPENEX [Concomitant]
     Indication: ASTHMA
     Dosage: UNK UNK, PRN
     Dates: start: 2002
  9. PREDNISONE [Concomitant]
     Indication: ASTHMA
     Dosage: UNK
     Dates: start: 2002
  10. PREDNISONE [Concomitant]
     Indication: ASTHMA
     Dosage: UNK
     Dates: start: 2003
  11. PREDNISONE [Concomitant]
     Indication: ASTHMA
     Dosage: TAPERING DOSE
     Dates: start: 20050530, end: 20050531
  12. CALCIUM W/VITAMINS NOS [Concomitant]
     Indication: NUTRITIONAL SUPPLEMENTATION
     Dosage: DAILY
  13. LEVAQUIN [Concomitant]
     Indication: INFECTION
     Dosage: 500 MG, BID
     Dates: start: 20050530, end: 20050606
  14. LEVAQUIN [Concomitant]
     Indication: ASTHMA
  15. MUCINEX [Concomitant]
     Indication: INFECTION
     Dosage: UNK UNK, PRN
     Dates: start: 20050530
  16. FORADIL [Concomitant]
     Dosage: 12 ?G, UNK
     Dates: start: 20050608
  17. ZYRTEC [Concomitant]
     Dosage: UNK
     Dates: start: 20050608
  18. PULMICORT [Concomitant]
     Dosage: UNK
     Dates: start: 20050608
  19. PRILOSEC [Concomitant]
     Indication: REFLUX GASTRITIS
     Dosage: UNK
     Dates: start: 20050608
  20. ROCEPHIN [Concomitant]
     Indication: ASTHMA
     Dosage: 1 G, UNK
     Route: 030
     Dates: start: 20050530

REACTIONS (18)
  - Cerebrovascular accident [None]
  - Cerebrovascular accident [None]
  - Transient ischaemic attack [None]
  - Intra-abdominal haemorrhage [None]
  - Injury [None]
  - Hemiparesis [None]
  - Mobility decreased [None]
  - Hemiparesis [None]
  - Dysarthria [None]
  - Hemiplegia [None]
  - Tachycardia [None]
  - Palpitations [None]
  - Headache [None]
  - Exercise tolerance decreased [None]
  - Musculoskeletal disorder [None]
  - General physical health deterioration [None]
  - Emotional disorder [None]
  - Pain [None]
